FAERS Safety Report 5948610 (Version 2)
Quarter: 2013Q2

REPORT INFORMATION
  Report Type: Spontaneous
  Country: US (occurrence: None)
  Receive Date: 20051209
  Receipt Date: 20130425
  Transmission Date: 20140414
  Serious: Yes (Hospitalization)
  Sender: FDA-Public Use
  Company Number: 2005US-01274

PATIENT
  Age: 41 Year
  Sex: Male

DRUGS (3)
  1. FENTANYL [Suspect]
     Indication: ANAESTHESIA
  2. ZEMURON [Suspect]
     Indication: ANAESTHESIA
  3. VERSED [Suspect]
     Indication: ANAESTHESIA

REACTIONS (10)
  - CARDIAC ARREST [None]
  - VENTRICULAR HYPERTROPHY [None]
  - VENTRICULAR HYPOKINESIA [None]
  - EJECTION FRACTION DECREASED [None]
  - HYPOXIC-ISCHAEMIC ENCEPHALOPATHY [None]
  - RHABDOMYOLYSIS [None]
  - RENAL FAILURE [None]
  - VENTRICULAR TACHYCARDIA [None]
  - BLOOD TRIGLYCERIDES INCREASED [None]
  - ANAESTHETIC COMPLICATION [None]
